FAERS Safety Report 9853038 (Version 1)
Quarter: 2014Q1

REPORT INFORMATION
  Report Type: Spontaneous
  Country: US (occurrence: None)
  Receive Date: 20140128
  Receipt Date: 20140128
  Transmission Date: 20141002
  Serious: Yes (Death)
  Sender: FDA-Public Use
  Company Number: None

PATIENT
  Age: 63 Year
  Sex: Female
  Weight: 88.2 kg

DRUGS (2)
  1. IL-2 [Suspect]
     Indication: METASTATIC MALIGNANT MELANOMA
     Route: 042
     Dates: start: 20131027, end: 20131028
  2. FOSAPREPITANT [Suspect]
     Route: 042
     Dates: start: 20131027, end: 20131028

REACTIONS (2)
  - Brain oedema [None]
  - Dyspnoea [None]
